FAERS Safety Report 21253051 (Version 2)
Quarter: 2022Q3

REPORT INFORMATION
  Report Type: Report from Study
  Country: IE (occurrence: IE)
  Receive Date: 20220825
  Receipt Date: 20220912
  Transmission Date: 20221027
  Serious: Yes (Hospitalization)
  Sender: FDA-Public Use
  Company Number: IE-NOVARTISPH-NVSC2022IE189857

PATIENT
  Sex: Female

DRUGS (1)
  1. KISQALI [Suspect]
     Active Substance: RIBOCICLIB
     Indication: Breast cancer metastatic
     Dosage: 600 MG
     Route: 048

REACTIONS (7)
  - Pain [Unknown]
  - Peripheral swelling [Unknown]
  - Oedema [Unknown]
  - Dysarthria [Unknown]
  - Poor quality sleep [Unknown]
  - Constipation [Unknown]
  - Dyspnoea [Unknown]
